FAERS Safety Report 17870689 (Version 10)
Quarter: 2022Q4

REPORT INFORMATION
  Report Type: Report from Study
  Country: CL (occurrence: CL)
  Receive Date: 20200608
  Receipt Date: 20221229
  Transmission Date: 20230113
  Serious: Yes (Life-Threatening, Hospitalization, Other)
  Sender: FDA-Public Use
  Company Number: NVSC2019CL079097

PATIENT
  Age: 54 Year
  Sex: Female

DRUGS (5)
  1. KISQALI [Suspect]
     Active Substance: RIBOCICLIB
     Indication: Breast cancer
     Dosage: 600 MG, QD
     Route: 048
     Dates: start: 20191127
  2. KISQALI [Suspect]
     Active Substance: RIBOCICLIB
     Dosage: 600 MG
     Route: 048
  3. KISQALI [Suspect]
     Active Substance: RIBOCICLIB
     Dosage: 600 MG (21 DAYS TREATMENT 7 DAYS REST)
     Route: 048
  4. KISQALI [Suspect]
     Active Substance: RIBOCICLIB
     Dosage: 600 MG
     Route: 048
     Dates: start: 20200515
  5. ZOMETA [Suspect]
     Active Substance: ZOLEDRONIC ACID
     Indication: Breast cancer
     Dosage: UNK
     Route: 065
     Dates: start: 201910

REACTIONS (27)
  - Metastasis [Unknown]
  - Cerebrovascular accident [Not Recovered/Not Resolved]
  - Haematoma [Recovering/Resolving]
  - Nervous system disorder [Unknown]
  - Epilepsy [Unknown]
  - Cerebral disorder [Unknown]
  - Fall [Unknown]
  - Vitiligo [Unknown]
  - Fatigue [Unknown]
  - Somnolence [Unknown]
  - Confusional state [Unknown]
  - Memory impairment [Unknown]
  - General physical health deterioration [Unknown]
  - Product dispensing issue [Unknown]
  - Pain [Unknown]
  - Malaise [Unknown]
  - Illness [Unknown]
  - Electrocardiogram abnormal [Unknown]
  - Thyroid disorder [Unknown]
  - Incontinence [Unknown]
  - Arthralgia [Unknown]
  - Visual impairment [Unknown]
  - Joint injury [Unknown]
  - Buttock injury [Unknown]
  - Asthenia [Unknown]
  - Inappropriate schedule of product administration [Unknown]
  - Product dose omission issue [Unknown]

NARRATIVE: CASE EVENT DATE: 20200429
